FAERS Safety Report 6568415-3 (Version None)
Quarter: 2010Q1

REPORT INFORMATION
  Report Type: 
  Country: None (occurrence: None)
  Receive Date: 20100128
  Receipt Date: 20100111
  Transmission Date: 20100710
  Serious: Yes (Other)
  Sender: FDA-Public Use
  Company Number: 020637450A

PATIENT
  Sex: Male

DRUGS (3)
  1. PHOS-FLUR ANTI-CAVITY DENTAL RINSE BUBBLE GUM FLAVOR [Suspect]
     Indication: DENTAL CARE
     Dosage: CAPFUL ONCE A DAY ORAL
     Route: 048
  2. SINGULAIR [Concomitant]
  3. ZYRTEC [Concomitant]

REACTIONS (7)
  - ALLERGY TO ANIMAL [None]
  - ALLERGY TO PLANTS [None]
  - FOOD ALLERGY [None]
  - HOUSE DUST ALLERGY [None]
  - HYPERSENSITIVITY [None]
  - LATEX ALLERGY [None]
  - MILK ALLERGY [None]
